FAERS Safety Report 24822824 (Version 2)
Quarter: 2025Q1

REPORT INFORMATION
  Report Type: Spontaneous
  Country: US (occurrence: US)
  Receive Date: 20250109
  Receipt Date: 20250207
  Transmission Date: 20250409
  Serious: No
  Sender: GLAXOSMITHKLINE
  Company Number: US-GSKCCFUS-Case-02183539_AE-120126

PATIENT
  Age: 40 Year
  Sex: Female

DRUGS (1)
  1. BENLYSTA [Suspect]
     Active Substance: BELIMUMAB
     Indication: Systemic lupus erythematosus
     Dosage: 200 MG/ML, WE
     Route: 058

REACTIONS (3)
  - Injection site haemorrhage [Unknown]
  - Product administered at inappropriate site [Unknown]
  - Product complaint [Unknown]

NARRATIVE: CASE EVENT DATE: 20241220
